FAERS Safety Report 19011139 (Version 1)
Quarter: 2021Q1

REPORT INFORMATION
  Report Type: Spontaneous
  Country: JP (occurrence: JP)
  Receive Date: 20210316
  Receipt Date: 20210316
  Transmission Date: 20210420
  Serious: Yes (Other)
  Sender: FDA-Public Use
  Company Number: JP-TEVA-2021-JP-1890667

PATIENT
  Age: 50 Year
  Sex: Female

DRUGS (4)
  1. GEMCITABINE. [Suspect]
     Active Substance: GEMCITABINE
     Indication: UTERINE LEIOMYOSARCOMA
     Dosage: ON DAY 1 AND DAY 8
     Route: 065
  2. DOCETAXEL. [Suspect]
     Active Substance: DOCETAXEL
     Indication: LEIOMYOSARCOMA METASTATIC
  3. GEMCITABINE. [Suspect]
     Active Substance: GEMCITABINE
     Indication: LEIOMYOSARCOMA METASTATIC
  4. DOCETAXEL. [Suspect]
     Active Substance: DOCETAXEL
     Indication: UTERINE LEIOMYOSARCOMA
     Dosage: ON DAY 8
     Route: 065

REACTIONS (2)
  - Dermatomyositis [Unknown]
  - Palmar-plantar erythrodysaesthesia syndrome [Unknown]
